FAERS Safety Report 11030927 (Version 1)
Quarter: 2015Q2

REPORT INFORMATION
  Report Type: Spontaneous
  Country: DE (occurrence: None)
  Receive Date: 20150413
  Receipt Date: 20150413
  Transmission Date: 20150821
  Serious: Yes (Life-Threatening, Hospitalization)
  Sender: FDA-Public Use
  Company Number: DE-001904

PATIENT
  Age: 38 Year
  Sex: Female
  Weight: 60 kg

DRUGS (6)
  1. SONOVUE [Suspect]
     Active Substance: SULFUR HEXAFLUORIDE
     Route: 040
  2. FERRO SANOL [Concomitant]
     Active Substance: FERROUS SULFATE\GLYCINE
  3. MOVICOL [Concomitant]
     Active Substance: POLYETHYLENE GLYCOL 3350\POTASSIUM CHLORIDE\SODIUM BICARBONATE\SODIUM CHLORIDE
  4. VOLTAREN [Concomitant]
     Active Substance: DICLOFENAC SODIUM
  5. PANTOPRAZOLE [Concomitant]
     Active Substance: PANTOPRAZOLE SODIUM
  6. FOLINIC ACID [Concomitant]
     Active Substance: LEUCOVORIN

REACTIONS (3)
  - Seizure [None]
  - Ammonia increased [None]
  - Contrast media reaction [None]

NARRATIVE: CASE EVENT DATE: 20150304
